FAERS Safety Report 7865115-4 (Version None)
Quarter: 2011Q4

REPORT INFORMATION
  Report Type: 
  Country: None (occurrence: None)
  Receive Date: 20111028
  Receipt Date: 20101018
  Transmission Date: 20120403
  Serious: No
  Sender: FDA-Public Use
  Company Number: US-GLAXOSMITHKLINE-A0887379A

PATIENT
  Age: 70 Year
  Sex: Female

DRUGS (11)
  1. NEXIUM [Concomitant]
  2. UNKNOWN MEDICATION [Concomitant]
  3. ADVAIR DISKUS 100/50 [Suspect]
     Indication: CHRONIC OBSTRUCTIVE PULMONARY DISEASE
     Dosage: 1PUFF TWICE PER DAY
     Route: 055
     Dates: start: 20090805
  4. POTASSIUM CHLORIDE [Concomitant]
  5. ASPIRIN [Concomitant]
  6. NORVASC [Concomitant]
  7. AMBIEN [Concomitant]
  8. SPIRIVA [Concomitant]
  9. SIMVASTATIN [Concomitant]
  10. TENORMIN [Concomitant]
  11. CELEBREX [Concomitant]

REACTIONS (3)
  - PAIN IN EXTREMITY [None]
  - JOINT SWELLING [None]
  - OEDEMA PERIPHERAL [None]
